FAERS Safety Report 15232498 (Version 1)
Quarter: 2018Q3

REPORT INFORMATION
  Report Type: Spontaneous
  Country: US (occurrence: US)
  Receive Date: 20180802
  Receipt Date: 20180802
  Transmission Date: 20181010
  Serious: Yes (Life-Threatening, Hospitalization)
  Sender: FDA-Public Use
  Company Number: US-MYLANLABS-2018M1056202

PATIENT
  Age: 56 Year
  Sex: Female
  Weight: 45 kg

DRUGS (2)
  1. FENTANYL TRANSDERMAL SYSTEM [Suspect]
     Active Substance: FENTANYL
     Indication: BACK PAIN
     Dosage: 50 ?G, QD
     Route: 062
  2. FENTANYL TRANSDERMAL SYSTEM [Suspect]
     Active Substance: FENTANYL
     Dosage: 50 ?G, QD
     Route: 062

REACTIONS (9)
  - Malaise [Unknown]
  - Nausea [Recovered/Resolved]
  - Abdominal pain upper [Recovering/Resolving]
  - Hypertension [Unknown]
  - Pneumonia [Recovered/Resolved]
  - Product adhesion issue [Unknown]
  - Constipation [Recovered/Resolved]
  - Intestinal perforation [Recovering/Resolving]
  - Pain [Recovered/Resolved]

NARRATIVE: CASE EVENT DATE: 20180620
